FAERS Safety Report 9452279 (Version 1)
Quarter: 2013Q3

REPORT INFORMATION
  Report Type: Spontaneous
  Country: US (occurrence: None)
  Receive Date: 20130808
  Receipt Date: 20130808
  Transmission Date: 20140515
  Serious: No
  Sender: FDA-Public Use
  Company Number: None

PATIENT
  Age: 59 Year
  Sex: Female

DRUGS (1)
  1. HUMIRA [Suspect]
     Dosage: EVERY 2 WEEKS
     Route: 058
     Dates: start: 20130618, end: 20130807

REACTIONS (2)
  - Diarrhoea [None]
  - White blood cell count decreased [None]
